FAERS Safety Report 9031092 (Version 2)
Quarter: 2014Q2

REPORT INFORMATION
  Report Type: Report from Study
  Country: HU (occurrence: HU)
  Receive Date: 20130123
  Receipt Date: 20140612
  Transmission Date: 20141212
  Serious: Yes (Other)
  Sender: FDA-Public Use
  Company Number: HU-BAYER-2013-007098

PATIENT
  Age: 45 Year
  Sex: Female
  Weight: 85 kg

DRUGS (1)
  1. MIRENA [Suspect]
     Dosage: 20 ?G/D, CONT
     Route: 015
     Dates: start: 20120711, end: 20121217

REACTIONS (8)
  - Device expulsion [None]
  - Off label use [None]
  - Device expulsion [None]
  - Off label use [None]
  - Pain [None]
  - Metrorrhagia [None]
  - Device expulsion [None]
  - Haemorrhagic anaemia [None]
